FAERS Safety Report 12424592 (Version 2)
Quarter: 2016Q2

REPORT INFORMATION
  Report Type: Spontaneous
  Country: US (occurrence: US)
  Receive Date: 20160601
  Receipt Date: 20160616
  Transmission Date: 20160815
  Serious: Yes (Hospitalization, Other)
  Sender: FDA-Public Use
  Company Number: US-PFIZER INC-2016274397

PATIENT
  Age: 52 Year
  Sex: Female
  Weight: 50 kg

DRUGS (13)
  1. VITAMIN B1 [Concomitant]
     Active Substance: THIAMINE HYDROCHLORIDE
     Dosage: UNK
     Route: 042
  2. MANGANESE CHLORIDE [Suspect]
     Active Substance: MANGANESE CHLORIDE
     Dosage: 800 MG, UNK (4 ML OF 200 MG/ML)
     Route: 042
  3. CALCIUM DISODIUM EDTA [Concomitant]
     Indication: CHELATION THERAPY
     Dosage: 2.5 G, UNK
     Route: 042
  4. N-ACETYLCYSTEINE [Concomitant]
     Active Substance: ACETYLCYSTEINE
     Indication: CHELATION THERAPY
     Dosage: UNK
     Route: 042
  5. CALCIUM DISODIUM EDTA [Concomitant]
     Dosage: UNK (1 G/M2 OVER EIGHT HOURS)
  6. HEPARIN [Concomitant]
     Active Substance: HEPARIN SODIUM
     Indication: CHELATION THERAPY
     Dosage: UNK
     Route: 042
  7. GLUTATHIONE [Concomitant]
     Active Substance: GLUTATHIONE
     Indication: CHELATION THERAPY
     Dosage: UNK
     Route: 042
  8. VITAMIN C [Concomitant]
     Active Substance: ASCORBIC ACID
     Indication: CHELATION THERAPY
     Dosage: UNK
     Route: 042
  9. POTASSIUM CHLORIDE. [Concomitant]
     Active Substance: POTASSIUM CHLORIDE
     Indication: CHELATION THERAPY
     Dosage: UNK
     Route: 042
  10. VITAMIN B6 [Concomitant]
     Active Substance: PYRIDOXINE HYDROCHLORIDE
     Indication: CHELATION THERAPY
     Dosage: UNK
     Route: 042
  11. VITAMIN B5 /00375501/ [Concomitant]
     Indication: CHELATION THERAPY
     Dosage: UNK
     Route: 042
  12. SODIUM BICARBONATE. [Concomitant]
     Active Substance: SODIUM BICARBONATE
     Indication: CHELATION THERAPY
     Dosage: UNK
     Route: 042
  13. NATURE-THROID [Concomitant]
     Active Substance: THYROID, PORCINE
     Indication: THYROIDITIS
     Dosage: UNK

REACTIONS (8)
  - Wrong drug administered [Not Recovered/Not Resolved]
  - Accidental overdose [Recovered/Resolved with Sequelae]
  - Central nervous system lesion [Not Recovered/Not Resolved]
  - Drug dispensing error [Not Recovered/Not Resolved]
  - Product preparation error [Not Recovered/Not Resolved]
  - Toxicity to various agents [Recovered/Resolved with Sequelae]
  - Drug prescribing error [Not Recovered/Not Resolved]
  - Flushing [Recovered/Resolved]
